FAERS Safety Report 5713823-3 (Version None)
Quarter: 2008Q2

REPORT INFORMATION
  Report Type: 
  Country: None (occurrence: None)
  Receive Date: 20080421
  Receipt Date: 20080409
  Transmission Date: 20081010
  Serious: Yes (Hospitalization)
  Sender: FDA-Public Use
  Company Number: POMP-1000129

PATIENT
  Age: 2 Year
  Sex: Male

DRUGS (2)
  1. MYOZYME [Suspect]
     Indication: GLYCOGEN STORAGE DISEASE TYPE II
     Dosage: 300 MG, Q2W, INTRAVENOUS
     Route: 042
     Dates: start: 20070601
  2. ACETAMINOPHEN [Concomitant]

REACTIONS (7)
  - EAR INFECTION [None]
  - ERYTHEMA [None]
  - INFUSION RELATED REACTION [None]
  - LUNG DISORDER [None]
  - OXYGEN SATURATION DECREASED [None]
  - RASH [None]
  - TACHYCARDIA [None]
